FAERS Safety Report 7237525-X (Version None)
Quarter: 2011Q1

REPORT INFORMATION
  Report Type: 
  Country: None (occurrence: None)
  Receive Date: 20110121
  Receipt Date: 20110113
  Transmission Date: 20110831
  Serious: Yes (Hospitalization)
  Sender: FDA-Public Use
  Company Number: IT-PFIZER INC-2011009395

PATIENT
  Age: 47 Year
  Sex: Female

DRUGS (7)
  1. FLUOXETINE [Concomitant]
     Dosage: UNK
  2. LYRICA [Suspect]
     Indication: SUICIDE ATTEMPT
     Dosage: 600 MG, TOTAL DOSE
     Route: 048
     Dates: start: 20101221, end: 20101221
  3. FLUOXETINE [Suspect]
     Indication: SUICIDE ATTEMPT
     Dosage: 560 MG, TOTAL DOSE
     Route: 048
     Dates: start: 20101221, end: 20101221
  4. CONTROL [Suspect]
     Indication: SUICIDE ATTEMPT
     Dosage: 25 MG, TOTAL DOSE
     Route: 048
     Dates: start: 20101221, end: 20101221
  5. ALPRAZOLAM [Suspect]
     Indication: SUICIDE ATTEMPT
     Dosage: 10 MG, TOTAL DOSE
     Route: 048
     Dates: start: 20101221, end: 20101221
  6. CONTROL [Concomitant]
     Dosage: UNK
  7. LEXOTAN [Suspect]
     Indication: SUICIDE ATTEMPT
     Dosage: 25 MG, TOTAL DOSE
     Route: 048
     Dates: start: 20101221, end: 20101221

REACTIONS (3)
  - BRADYKINESIA [None]
  - BRADYPHRENIA [None]
  - SUICIDE ATTEMPT [None]
